FAERS Safety Report 6709218-6 (Version None)
Quarter: 2010Q2

REPORT INFORMATION
  Report Type: 
  Country: None (occurrence: None)
  Receive Date: 20100503
  Receipt Date: 20100503
  Transmission Date: 20101027
  Serious: Yes (Other)
  Sender: FDA-Public Use
  Company Number: None

PATIENT
  Sex: Male
  Weight: 86.1834 kg

DRUGS (1)
  1. LEXAPRO [Suspect]
     Indication: INSOMNIA
     Dosage: 20MG ONCE DAILY PO
     Route: 048
     Dates: start: 20091010, end: 20100330

REACTIONS (8)
  - ANAESTHESIA [None]
  - ANORGASMIA [None]
  - DIARRHOEA [None]
  - DIZZINESS [None]
  - EUPHORIC MOOD [None]
  - PARAESTHESIA [None]
  - SEXUAL DYSFUNCTION [None]
  - UROGENITAL DISORDER [None]
